FAERS Safety Report 5923184-2 (Version None)
Quarter: 2008Q4

REPORT INFORMATION
  Report Type: 
  Country: None (occurrence: None)
  Receive Date: 20081020
  Receipt Date: 20081011
  Transmission Date: 20090506
  Serious: Yes (Death, Other)
  Sender: FDA-Public Use
  Company Number: DE-CELGENEUS-062-21880-08100824

PATIENT
  Sex: Male

DRUGS (2)
  1. REVLIMID [Suspect]
     Indication: MULTIPLE MYELOMA
     Route: 048
  2. DEXAMETHASONE [Concomitant]
     Indication: MULTIPLE MYELOMA
     Route: 065

REACTIONS (5)
  - DEATH [None]
  - INFECTION [None]
  - NECROSIS [None]
  - NEUTROPENIA [None]
  - SEPSIS [None]
